FAERS Safety Report 8798139 (Version 1)
Quarter: 2012Q4

REPORT INFORMATION
  Report Type: 
  Country: IT (occurrence: IT)
  Receive Date: 20120920
  Receipt Date: 20120920
  Transmission Date: 20130627
  Serious: Yes (Hospitalization)
  Sender: FDA-Public Use
  Company Number: IT-AMGEN-ITACT2012058991

PATIENT
  Sex: Male

DRUGS (1)
  1. ETANERCEPT [Suspect]
     Indication: JUVENILE ARTHRITIS
     Dosage: UNK

REACTIONS (3)
  - Off label use [Unknown]
  - Necrotising fasciitis [Unknown]
  - Herpes zoster [Unknown]
